FAERS Safety Report 25956221 (Version 4)
Quarter: 2025Q4

REPORT INFORMATION
  Report Type: Spontaneous
  Country: EG (occurrence: EG)
  Receive Date: 20251024
  Receipt Date: 20251205
  Transmission Date: 20260118
  Serious: Yes (Other)
  Sender: HETERO
  Company Number: EG-HETERO-HET2025EG06282

PATIENT
  Age: 42 Year
  Sex: Female
  Weight: 110 kg

DRUGS (7)
  1. DIMETHYL FUMARATE [Suspect]
     Active Substance: DIMETHYL FUMARATE
     Indication: Multiple sclerosis
     Dosage: 2 DOSAGE FORM, Q.D.(2 TABLETS DAILY)
     Route: 048
     Dates: start: 20250901, end: 20251009
  2. DIMETHYL FUMARATE [Suspect]
     Active Substance: DIMETHYL FUMARATE
     Dosage: UNK
     Route: 065
     Dates: start: 20251009, end: 20251010
  3. DIMETHYL FUMARATE [Suspect]
     Active Substance: DIMETHYL FUMARATE
     Dosage: UNK
     Route: 065
  4. BISOPROLOL FUMARATE [Concomitant]
     Active Substance: BISOPROLOL FUMARATE
     Indication: Product used for unknown indication
     Dosage: 5 MILLIGRAM PLUS
     Route: 065
  5. ATOREASE [Concomitant]
     Indication: Product used for unknown indication
     Dosage: 10/20 MILLIGRAM
     Route: 065
  6. L CARNITIN [LEVOCARNITINE] [Concomitant]
     Indication: Product used for unknown indication
     Dosage: UNK
     Route: 065
  7. GAPTIN [Concomitant]
     Indication: Product used for unknown indication
     Dosage: 100 MILLIGRAM
     Route: 065

REACTIONS (6)
  - Pyelonephritis [Recovered/Resolved]
  - Pyrexia [Recovered/Resolved]
  - Limb discomfort [Recovered/Resolved]
  - Gastritis [Recovered/Resolved]
  - Cystitis [Recovered/Resolved]
  - Burning sensation [Recovered/Resolved]

NARRATIVE: CASE EVENT DATE: 20250901
